FAERS Safety Report 12396933 (Version 1)
Quarter: 2016Q2

REPORT INFORMATION
  Report Type: Spontaneous
  Country: US (occurrence: None)
  Receive Date: 20160523
  Receipt Date: 20160523
  Transmission Date: 20160815
  Serious: No
  Sender: FDA-Public Use
  Company Number: None

PATIENT
  Age: 30 Year
  Sex: Female

DRUGS (1)
  1. HUMIRA [Suspect]
     Active Substance: ADALIMUMAB
     Indication: HIDRADENITIS
     Dosage: 1 PEN 40MG WEEKLY SUBCUTANEOUSLY
     Route: 058
     Dates: start: 20160321

REACTIONS (2)
  - Activities of daily living impaired [None]
  - Hypoaesthesia [None]

NARRATIVE: CASE EVENT DATE: 20160430
